FAERS Safety Report 5054310-8 (Version None)
Quarter: 2006Q3

REPORT INFORMATION
  Report Type: 
  Country: None (occurrence: None)
  Receive Date: 20060713
  Receipt Date: 20060627
  Transmission Date: 20061208
  Serious: Yes (Hospitalization, Other)
  Sender: FDA-Public Use
  Company Number: 2006BI008682

PATIENT
  Age: 36 Year
  Sex: Female

DRUGS (2)
  1. AVONEX [Suspect]
     Indication: MULTIPLE SCLEROSIS
     Dosage: IM
     Route: 030
     Dates: start: 19961001, end: 20060501
  2. VALIUM [Concomitant]

REACTIONS (9)
  - AMENORRHOEA [None]
  - CONVULSION [None]
  - DEPRESSION [None]
  - HEPATIC FAILURE [None]
  - HEPATOMEGALY [None]
  - MIGRAINE [None]
  - MULTIPLE SCLEROSIS RELAPSE [None]
  - RENAL FAILURE [None]
  - STRESS [None]
